FAERS Safety Report 23107900 (Version 2)
Quarter: 2023Q4

REPORT INFORMATION
  Report Type: Report from Study
  Country: FR (occurrence: FR)
  Receive Date: 20231026
  Receipt Date: 20231129
  Transmission Date: 20240110
  Serious: Yes (Hospitalization)
  Sender: FDA-Public Use
  Company Number: FR-ABBVIE-5463413

PATIENT
  Age: 79 Year
  Sex: Male

DRUGS (2)
  1. CARBIDOPA\LEVODOPA [Suspect]
     Active Substance: CARBIDOPA\LEVODOPA
     Indication: Parkinson^s disease
     Route: 050
     Dates: start: 20221017, end: 20231021
  2. CARBIDOPA\LEVODOPA [Suspect]
     Active Substance: CARBIDOPA\LEVODOPA
     Dosage: MORNING DOSE: 10 ML, FLOW RATE FROM 6:30 TO 12:30: 3 ML/H, FROM 12:30 TO 21:00: 3.6 ML/H
     Route: 050
     Dates: start: 2023

REACTIONS (11)
  - Stoma site reaction [Not Recovered/Not Resolved]
  - Device dislocation [Not Recovered/Not Resolved]
  - Freezing phenomenon [Unknown]
  - Stoma site pain [Not Recovered/Not Resolved]
  - Device breakage [Not Recovered/Not Resolved]
  - Dyskinesia [Not Recovered/Not Resolved]
  - Weight decreased [Not Recovered/Not Resolved]
  - Psychomotor hyperactivity [Unknown]
  - Behaviour disorder [Unknown]
  - On and off phenomenon [Unknown]
  - Psychotic behaviour [Unknown]

NARRATIVE: CASE EVENT DATE: 20230101
